FAERS Safety Report 8259652-0 (Version None)
Quarter: 2012Q2

REPORT INFORMATION
  Report Type: 
  Country: None (occurrence: None)
  Receive Date: 20120404
  Receipt Date: 20120403
  Transmission Date: 20120825
  Serious: Yes (Death)
  Sender: FDA-Public Use
  Company Number: PHEH2012US002669

PATIENT
  Sex: Male

DRUGS (2)
  1. TASIGNA [Suspect]
     Indication: HAEMATOPOIETIC NEOPLASM
     Dosage: 200 MG, QD
     Route: 048
     Dates: start: 20081101, end: 20120101
  2. TASIGNA [Suspect]
     Indication: LYMPHATIC SYSTEM NEOPLASM

REACTIONS (1)
  - DEATH [None]
